FAERS Safety Report 15525713 (Version 2)
Quarter: 2018Q4

REPORT INFORMATION
  Report Type: Report from Study
  Country: US (occurrence: US)
  Receive Date: 20181019
  Receipt Date: 20181026
  Transmission Date: 20190205
  Serious: Yes (Hospitalization)
  Sender: FDA-Public Use
  Company Number: US-ACTELION-A-NJ2017-152615

PATIENT
  Age: 47 Year
  Sex: Female
  Weight: 92.63 kg

DRUGS (5)
  1. TRACLEER [Suspect]
     Active Substance: BOSENTAN
     Indication: PULMONARY ARTERIAL HYPERTENSION
     Dosage: 125 MG, BID
     Route: 048
  2. REMODULIN [Concomitant]
     Active Substance: TREPROSTINIL
  3. ADCIRCA [Concomitant]
     Active Substance: TADALAFIL
  4. CHLORHEXIDIN [Suspect]
     Active Substance: CHLORHEXIDINE
     Indication: PRODUCT USED FOR UNKNOWN INDICATION
     Route: 061
  5. WARFARIN [Concomitant]
     Active Substance: WARFARIN

REACTIONS (14)
  - Device connection issue [Unknown]
  - Nasopharyngitis [Unknown]
  - Sinus disorder [Unknown]
  - Dyspnoea [Unknown]
  - Flushing [Unknown]
  - Device dislocation [Unknown]
  - Peripheral swelling [Unknown]
  - Catheter site pain [Unknown]
  - Nasal congestion [Unknown]
  - Catheter site erythema [Unknown]
  - Device use error [Unknown]
  - Application site hypersensitivity [Unknown]
  - Pain in extremity [Unknown]
  - Catheter site vesicles [Unknown]

NARRATIVE: CASE EVENT DATE: 20171224
